FAERS Safety Report 4910234-5 (Version None)
Quarter: 2006Q1

REPORT INFORMATION
  Report Type: 
  Country: None (occurrence: None)
  Receive Date: 20060213
  Receipt Date: 20060203
  Transmission Date: 20060701
  Serious: Yes (Other)
  Sender: FDA-Public Use
  Company Number: US-MERCK-0602USA00868

PATIENT
  Age: 44 Year
  Sex: Male
  Weight: 93 kg

DRUGS (4)
  1. VIOXX [Suspect]
     Indication: ARTHRITIS
     Route: 048
     Dates: start: 20030301, end: 20040101
  2. VIOXX [Suspect]
     Route: 048
     Dates: start: 20030301, end: 20040101
  3. ALEVE [Concomitant]
     Route: 065
  4. CELEBREX [Concomitant]
     Route: 065

REACTIONS (2)
  - MYOCARDIAL INFARCTION [None]
  - PRESCRIBED OVERDOSE [None]
